FAERS Safety Report 5002773-6 (Version None)
Quarter: 2006Q2

REPORT INFORMATION
  Report Type: 
  Country: None (occurrence: None)
  Receive Date: 20060512
  Receipt Date: 20060501
  Transmission Date: 20061013
  Serious: Yes (Hospitalization)
  Sender: FDA-Public Use
  Company Number: MEDI-0004527

PATIENT
  Age: 56 Year
  Sex: Male

DRUGS (24)
  1. ETHYOL [Suspect]
     Indication: CHEMOTHERAPY
     Dosage: 1 IN 1 D, SUBCUTANEOUS
     Route: 058
     Dates: start: 20060411, end: 20060428
  2. ETHYOL [Suspect]
     Indication: RADIOTHERAPY
     Dosage: 1 IN 1 D, SUBCUTANEOUS
     Route: 058
     Dates: start: 20060411, end: 20060428
  3. CARBOPLATIN [Concomitant]
  4. TAXOL [Concomitant]
  5. CISPLATIN [Concomitant]
  6. ETOPOSIDE [Concomitant]
  7. RADIATION THERAPY [Concomitant]
  8. PERCOCET [Concomitant]
  9. DARVOCET (PARACETAMOL, DEXTROPROPOXYPHENE NAPSILATE) [Concomitant]
  10. XANAX [Concomitant]
  11. ACYCLOVIR [Concomitant]
  12. AMBIEN [Concomitant]
  13. FERROUS SULFATE TAB [Concomitant]
  14. PROCRIT [Concomitant]
  15. PAXIL [Concomitant]
  16. PERI-COLACE [Concomitant]
  17. PROTONIX [Concomitant]
  18. NEUPOGEN [Concomitant]
  19. LOPRESSOR [Concomitant]
  20. SINGULAR (MONTELUKAST SODIUM) [Concomitant]
  21. ZOCOR [Concomitant]
  22. CARDIZEM CD [Concomitant]
  23. IPATROPIUM (IPRATROPIUM) [Concomitant]
  24. VANCOMYCIN [Concomitant]

REACTIONS (6)
  - BACTERIAL INFECTION [None]
  - CULTURE URINE POSITIVE [None]
  - HYPOTENSION [None]
  - LEUKOPENIA [None]
  - PYREXIA [None]
  - RASH GENERALISED [None]
